FAERS Safety Report 15833551 (Version 1)
Quarter: 2018Q4

REPORT INFORMATION
  Report Type: Spontaneous
  Country: US (occurrence: US)
  Receive Date: 20181221
  Receipt Date: 20181221
  Transmission Date: 20190205
  Serious: No
  Sender: FDA-Public Use
  Company Number: None

PATIENT
  Age: 31 Year
  Sex: Female
  Weight: 78.75 kg

DRUGS (2)
  1. GADOLINIUM [Suspect]
     Active Substance: GADOLINIUM
     Indication: NUCLEAR MAGNETIC RESONANCE IMAGING
     Dates: start: 20181214, end: 20181214
  2. FALMINA [Concomitant]
     Active Substance: ETHINYL ESTRADIOL\LEVONORGESTREL

REACTIONS (4)
  - Pain in extremity [None]
  - Paraesthesia [None]
  - Contrast media toxicity [None]
  - Pruritus generalised [None]

NARRATIVE: CASE EVENT DATE: 20181221
